FAERS Safety Report 9051387 (Version 1)
Quarter: 2013Q1

REPORT INFORMATION
  Report Type: Spontaneous
  Country: BR (occurrence: BR)
  Receive Date: 20130206
  Receipt Date: 20130206
  Transmission Date: 20140127
  Serious: Yes (Other)
  Sender: FDA-Public Use
  Company Number: PHHY2013BR009590

PATIENT
  Sex: Male

DRUGS (3)
  1. EXJADE [Suspect]
     Indication: IRON OVERLOAD
     Dosage: 1650 MG DAILY
     Dates: end: 20121222
  2. FOLIC ACID [Concomitant]
  3. URSACOL [Concomitant]

REACTIONS (1)
  - Infection [Recovering/Resolving]
